FAERS Safety Report 21496266 (Version 1)
Quarter: 2022Q4

REPORT INFORMATION
  Report Type: Report from Study
  Country: MX (occurrence: MX)
  Receive Date: 20221022
  Receipt Date: 20221022
  Transmission Date: 20230113
  Serious: Yes (Life-Threatening, Hospitalization, Other)
  Sender: FDA-Public Use
  Company Number: MX-NOVARTISPH-NVSC2022MX238538

PATIENT
  Sex: Male
  Weight: 105 kg

DRUGS (1)
  1. ENTRESTO [Suspect]
     Active Substance: SACUBITRIL\VALSARTAN
     Indication: Product used for unknown indication
     Dosage: UNK
     Route: 065

REACTIONS (7)
  - Coma [Recovered/Resolved]
  - Limb discomfort [Not Recovered/Not Resolved]
  - Colon cancer [Recovered/Resolved]
  - Illness [Not Recovered/Not Resolved]
  - Fall [Unknown]
  - Bone pain [Unknown]
  - Myalgia [Unknown]
